FAERS Safety Report 18855741 (Version 1)
Quarter: 2021Q1

REPORT INFORMATION
  Report Type: Spontaneous
  Country: US (occurrence: US)
  Receive Date: 20210205
  Receipt Date: 20210205
  Transmission Date: 20210420
  Serious: No
  Sender: FDA-Public Use
  Company Number: US-NEURELIS, INC.-2020NEU000177

PATIENT
  Age: 14 Year
  Sex: Male

DRUGS (1)
  1. VALTOCO [Suspect]
     Active Substance: DIAZEPAM
     Indication: SEIZURE
     Dosage: UNK

REACTIONS (2)
  - Nausea [Unknown]
  - Dizziness [Unknown]
